FAERS Safety Report 16087849 (Version 1)
Quarter: 2019Q1

REPORT INFORMATION
  Report Type: Spontaneous
  Country: US (occurrence: US)
  Receive Date: 20190319
  Receipt Date: 20190319
  Transmission Date: 20190418
  Serious: Yes (Other)
  Sender: FDA-Public Use
  Company Number: US-ACCORD-113335

PATIENT
  Sex: Female

DRUGS (1)
  1. CLONAZEPAM ACCORD [Suspect]
     Active Substance: CLONAZEPAM
     Indication: ANXIETY
     Dosage: 0.5 TABLET AND 1/2 OF A 2 MG TABLET ONCE A DAY AS NEEDED

REACTIONS (2)
  - Autoimmune thyroiditis [Not Recovered/Not Resolved]
  - Impaired healing [Not Recovered/Not Resolved]
